FAERS Safety Report 8341773-5 (Version None)
Quarter: 2012Q2

REPORT INFORMATION
  Report Type: 
  Country: None (occurrence: None)
  Receive Date: 20120507
  Receipt Date: 20120423
  Transmission Date: 20120825
  Serious: Yes (Hospitalization, Other)
  Sender: FDA-Public Use
  Company Number: US-ELI_LILLY_AND_COMPANY-US201204008510

PATIENT
  Age: 26 Year
  Sex: Male

DRUGS (2)
  1. PROZAC [Suspect]
     Indication: TIC
     Dosage: 20 MG, QD
  2. ATOMOXETINE HYDROCHLORIDE [Suspect]
     Dosage: 100 MG, QD

REACTIONS (8)
  - SINUS TACHYCARDIA [None]
  - ORTHOSTATIC HYPOTENSION [None]
  - TIC [None]
  - DRUG INTERACTION [None]
  - FALL [None]
  - DRUG INEFFECTIVE [None]
  - SYNCOPE [None]
  - MYDRIASIS [None]
